FAERS Safety Report 15425922 (Version 1)
Quarter: 2018Q3

REPORT INFORMATION
  Report Type: Spontaneous
  Country: FR (occurrence: FR)
  Receive Date: 20180925
  Receipt Date: 20180925
  Transmission Date: 20181010
  Serious: Yes (Congenital Anomaly)
  Sender: FDA-Public Use
  Company Number: FR-PFIZER INC-2018378045

PATIENT
  Sex: Male

DRUGS (4)
  1. LEVETIRACETAM. [Suspect]
     Active Substance: LEVETIRACETAM
     Dosage: 3.5 G, QD
     Route: 064
     Dates: start: 20171023, end: 20180706
  2. PAROXETINE HYDROCHLORIDE. [Suspect]
     Active Substance: PAROXETINE HYDROCHLORIDE
     Dosage: 20 MG, QD
     Route: 064
     Dates: start: 20180502, end: 20180706
  3. OXAZEPAM. [Suspect]
     Active Substance: OXAZEPAM
     Dosage: 10 MG, QD
     Route: 064
     Dates: start: 20180629, end: 20180706
  4. URBANYL [Suspect]
     Active Substance: CLOBAZAM
     Dosage: 10?20 MG, QD
     Route: 064
     Dates: start: 20180502, end: 20180629

REACTIONS (2)
  - Hamartoma [Recovered/Resolved]
  - Maternal exposure during pregnancy [Unknown]

NARRATIVE: CASE EVENT DATE: 20180706
